FAERS Safety Report 11115265 (Version 2)
Quarter: 2015Q4

REPORT INFORMATION
  Report Type: Report from Study
  Country: EC (occurrence: EC)
  Receive Date: 20150515
  Receipt Date: 20151202
  Transmission Date: 20160304
  Serious: Yes (Death, Hospitalization)
  Sender: FDA-Public Use
  Company Number: EC-ROCHE-1570836

PATIENT
  Sex: Female

DRUGS (1)
  1. MABTHERA [Suspect]
     Active Substance: RITUXIMAB
     Indication: ACUTE LYMPHOCYTIC LEUKAEMIA
     Route: 042
     Dates: start: 20150129

REACTIONS (6)
  - Chills [Unknown]
  - Pain in extremity [Unknown]
  - Pain [Unknown]
  - Pyrexia [Fatal]
  - Drug dose omission [Unknown]
  - Bone pain [Fatal]
